FAERS Safety Report 9621096 (Version 1)
Quarter: 2013Q4

REPORT INFORMATION
  Report Type: Spontaneous
  Country: US (occurrence: US)
  Receive Date: 20131015
  Receipt Date: 20131015
  Transmission Date: 20140711
  Serious: Yes (Disabling, Other)
  Sender: FDA-Public Use
  Company Number: US-ASTRAZENECA-2013SE75093

PATIENT
  Age: 33815 Day
  Sex: Female

DRUGS (1)
  1. SYMBICORT [Suspect]
     Dosage: 160/4.5 MICROGRAMS, 2 PUFFS BID
     Route: 055

REACTIONS (5)
  - Blindness [Unknown]
  - Blindness unilateral [Unknown]
  - Macular degeneration [Unknown]
  - Intentional drug misuse [Unknown]
  - Incorrect product storage [Unknown]
